FAERS Safety Report 18325842 (Version 1)
Quarter: 2020Q3

REPORT INFORMATION
  Report Type: Spontaneous
  Country: US (occurrence: US)
  Receive Date: 20200929
  Receipt Date: 20200929
  Transmission Date: 20201103
  Serious: No
  Sender: FDA-Public Use
  Company Number: US-GW PHARMA-202009USGW03249

PATIENT

DRUGS (1)
  1. EPIDIOLEX [Suspect]
     Active Substance: CANNABIDIOL
     Indication: LENNOX-GASTAUT SYNDROME
     Dosage: 230 MILLIGRAM, BID
     Route: 048
     Dates: start: 20200522

REACTIONS (4)
  - Sensitive skin [Unknown]
  - Scoliosis [Unknown]
  - Decubitus ulcer [Unknown]
  - Rash papular [Unknown]

NARRATIVE: CASE EVENT DATE: 2020
